FAERS Safety Report 16016338 (Version 1)
Quarter: 2019Q1

REPORT INFORMATION
  Report Type: Spontaneous
  Country: US (occurrence: US)
  Receive Date: 20190227
  Receipt Date: 20190227
  Transmission Date: 20190418
  Serious: Yes (Disabling)
  Sender: FDA-Public Use
  Company Number: None

PATIENT
  Age: 24 Year
  Sex: Female
  Weight: 74.25 kg

DRUGS (1)
  1. DEPO-PROVERA [Suspect]
     Active Substance: MEDROXYPROGESTERONE ACETATE
     Indication: DYSMENORRHOEA
     Dosage: ?          OTHER FREQUENCY:ONCE EVERY 3 MONTH;OTHER ROUTE:INJECTED INTO THE BUTTOCKS?

REACTIONS (2)
  - Weight increased [None]
  - Menstruation irregular [None]

NARRATIVE: CASE EVENT DATE: 20130911
